FAERS Safety Report 10973346 (Version 1)
Quarter: 2015Q1

REPORT INFORMATION
  Report Type: Spontaneous
  Country: US (occurrence: None)
  Receive Date: 20150331
  Receipt Date: 20150331
  Transmission Date: 20150721
  Serious: Yes (Hospitalization, Disabling, Other)
  Sender: FDA-Public Use
  Company Number: None

PATIENT
  Age: 35 Year
  Sex: Female
  Weight: 74.84 kg

DRUGS (8)
  1. ESTROGEN [Concomitant]
     Active Substance: ESTRONE\SUS SCROFA OVARY
  2. BENADRYL [Concomitant]
     Active Substance: DIPHENHYDRAMINE HYDROCHLORIDE
  3. VALIUM [Concomitant]
     Active Substance: DIAZEPAM
  4. METFORMIN [Concomitant]
     Active Substance: METFORMIN HYDROCHLORIDE
  5. XANAX [Suspect]
     Active Substance: ALPRAZOLAM
     Indication: BLOOD PRESSURE INCREASED
     Route: 048
     Dates: start: 1998
  6. VITAMIN D [Concomitant]
     Active Substance: CHOLECALCIFEROL
  7. TOPROL XL [Concomitant]
     Active Substance: METOPROLOL SUCCINATE
  8. XANAX [Suspect]
     Active Substance: ALPRAZOLAM
     Indication: STRESS
     Route: 048
     Dates: start: 1998

REACTIONS (13)
  - Confusional state [None]
  - Vision blurred [None]
  - Panic attack [None]
  - Blood glucose increased [None]
  - Quality of life decreased [None]
  - Blood insulin increased [None]
  - Dysstasia [None]
  - Dizziness [None]
  - Hypertension [None]
  - Tinnitus [None]
  - Urticaria [None]
  - Disorientation [None]
  - Gastric disorder [None]

NARRATIVE: CASE EVENT DATE: 20150301
